FAERS Safety Report 5129074-X (Version None)
Quarter: 2006Q4

REPORT INFORMATION
  Report Type: 
  Country: None (occurrence: None)
  Receive Date: 20061011
  Receipt Date: 20060925
  Transmission Date: 20070319
  Serious: Yes (Hospitalization)
  Sender: FDA-Public Use
  Company Number: 20063232

PATIENT
  Sex: Male

DRUGS (1)
  1. LIORESAL [Suspect]
     Indication: MUSCLE SPASTICITY
     Dosage: 1300 MCG, DAILY, INTRATHECAL
     Route: 037

REACTIONS (6)
  - BRADYCARDIA [None]
  - CATHETER RELATED COMPLICATION [None]
  - GASTRITIS [None]
  - HYPOTONIA [None]
  - LETHARGY [None]
  - TACHYCARDIA [None]
